FAERS Safety Report 5815232-5 (Version None)
Quarter: 2008Q3

REPORT INFORMATION
  Report Type: 
  Country: None (occurrence: None)
  Receive Date: 20080718
  Receipt Date: 20080710
  Transmission Date: 20090109
  Serious: Yes (Disabling)
  Sender: FDA-Public Use
  Company Number: US-BOEHRINGER INGELHEIM GMBH, GERMANY-2008-BP-10981BP

PATIENT
  Sex: Male

DRUGS (1)
  1. FLOMAX [Suspect]
     Route: 048
     Dates: start: 20060101

REACTIONS (4)
  - BLINDNESS [None]
  - CATARACT [None]
  - RHINORRHOEA [None]
  - SEXUAL DYSFUNCTION [None]
